FAERS Safety Report 24039637 (Version 2)
Quarter: 2024Q3

REPORT INFORMATION
  Report Type: Other
  Country: US (occurrence: US)
  Receive Date: 20240702
  Receipt Date: 20240927
  Transmission Date: 20241016
  Serious: Yes (Death)
  Sender: ALVOGEN
  Company Number: US-ALVOGEN-2024094949

PATIENT
  Age: 15 Year
  Sex: Male

DRUGS (4)
  1. FENTANYL [Suspect]
     Active Substance: FENTANYL\FENTANYL CITRATE
     Indication: Product used for unknown indication
  2. METHAMPHETAMINE [Suspect]
     Active Substance: METHAMPHETAMINE
     Indication: Product used for unknown indication
  3. ACETAMINOPHEN [Concomitant]
     Active Substance: ACETAMINOPHEN
     Indication: Product used for unknown indication
  4. CANNABIS SATIVA FLOWERING TOP [Concomitant]
     Active Substance: CANNABIS SATIVA FLOWERING TOP
     Indication: Product used for unknown indication

REACTIONS (8)
  - Toxicity to various agents [Fatal]
  - Choking [Fatal]
  - Oropharyngeal pain [Fatal]
  - Nasal congestion [Fatal]
  - Vomiting [Fatal]
  - Loss of consciousness [Fatal]
  - Brain oedema [Fatal]
  - Pulmonary oedema [Fatal]
